FAERS Safety Report 13447848 (Version 1)
Quarter: 2017Q2

REPORT INFORMATION
  Report Type: Spontaneous
  Country: None (occurrence: US)
  Receive Date: 20170415
  Receipt Date: 20170415
  Transmission Date: 20170830
  Serious: Yes (Hospitalization)
  Sender: FDA-Public Use
  Company Number: None

PATIENT
  Age: 61 Year
  Sex: Male
  Weight: 68.8 kg

DRUGS (2)
  1. BENDAMUSTINE HYDROCHLORIDE. [Suspect]
     Active Substance: BENDAMUSTINE HYDROCHLORIDE
     Dates: end: 20160209
  2. RITUXIMAB (MOAB C2B8 ANTI CD20, CHIMERIC) [Suspect]
     Active Substance: RITUXIMAB
     Dates: end: 20160209

REACTIONS (7)
  - Acute kidney injury [None]
  - Hepatic function abnormal [None]
  - Ischaemic hepatitis [None]
  - Respiratory failure [None]
  - Septic shock [None]
  - Metabolic acidosis [None]
  - Acute respiratory failure [None]

NARRATIVE: CASE EVENT DATE: 20160210
